FAERS Safety Report 8783513 (Version 1)
Quarter: 2012Q4

REPORT INFORMATION
  Report Type: Report from Study
  Country: US (occurrence: US)
  Receive Date: 20120913
  Receipt Date: 20120913
  Transmission Date: 20130627
  Serious: No
  Sender: FDA-Public Use
  Company Number: US-VERTEX PHARMACEUTICAL INC.-AE-2012-008600

PATIENT
  Sex: Male
  Weight: 104.55 kg

DRUGS (7)
  1. INCIVEK [Suspect]
     Indication: HEPATITIS C
     Route: 048
  2. PEGASYS PROCLICK [Concomitant]
     Indication: HEPATITIS C
  3. RIBAVIRIN [Concomitant]
     Indication: HEPATITIS C
  4. AMLOD/ BENZAP [Concomitant]
  5. METFORMIN [Concomitant]
  6. ASPIRIN CHW [Concomitant]
  7. PROCRIT [Concomitant]

REACTIONS (9)
  - Type 2 diabetes mellitus [Unknown]
  - Weight decreased [Unknown]
  - Decreased appetite [Unknown]
  - Visual impairment [Unknown]
  - Fatigue [Unknown]
  - Anaemia [Unknown]
  - Diarrhoea [Unknown]
  - Anorectal discomfort [Unknown]
  - Anal pruritus [Unknown]
